FAERS Safety Report 17033047 (Version 1)
Quarter: 2019Q4

REPORT INFORMATION
  Report Type: Spontaneous
  Country: US (occurrence: US)
  Receive Date: 20191114
  Receipt Date: 20191114
  Transmission Date: 20200122
  Serious: No
  Sender: FDA-Public Use
  Company Number: US-BAUSCH-BL-2019-059964

PATIENT
  Sex: Female
  Weight: 81.65 kg

DRUGS (2)
  1. PEPCID [Suspect]
     Active Substance: FAMOTIDINE
     Indication: GASTROOESOPHAGEAL REFLUX DISEASE
  2. PEPCID [Suspect]
     Active Substance: FAMOTIDINE
     Indication: HIATUS HERNIA
     Dosage: TOOK ONE OR TWO OVER THE YEARS
     Route: 048

REACTIONS (1)
  - Drug ineffective [Unknown]
